FAERS Safety Report 22528027 (Version 2)
Quarter: 2023Q2

REPORT INFORMATION
  Report Type: Spontaneous
  Country: US (occurrence: US)
  Receive Date: 20230606
  Receipt Date: 20230611
  Transmission Date: 20230721
  Serious: Yes (Other)
  Sender: FDA-Public Use
  Company Number: US-JNJFOC-20230573940

PATIENT
  Age: 61 Year
  Sex: Male
  Weight: 57.658 kg

DRUGS (4)
  1. ZYTIGA [Suspect]
     Active Substance: ABIRATERONE ACETATE
     Indication: Product used for unknown indication
     Route: 048
  2. ZYTIGA [Suspect]
     Active Substance: ABIRATERONE ACETATE
     Route: 048
  3. ZYTIGA [Suspect]
     Active Substance: ABIRATERONE ACETATE
     Route: 048
  4. DILANTIN [Interacting]
     Active Substance: PHENYTOIN
     Indication: Epilepsy
     Route: 065

REACTIONS (5)
  - Liver function test increased [Unknown]
  - Drug level increased [Unknown]
  - Weight decreased [Unknown]
  - Off label use [Unknown]
  - Drug interaction [Unknown]
